FAERS Safety Report 23895298 (Version 1)
Quarter: 2024Q2

REPORT INFORMATION
  Report Type: Spontaneous
  Country: IL (occurrence: IL)
  Receive Date: 20240524
  Receipt Date: 20240524
  Transmission Date: 20240715
  Serious: Yes (Other)
  Sender: FDA-Public Use
  Company Number: IL-MEDLEY-000006

PATIENT
  Age: 6 Year
  Sex: Male

DRUGS (2)
  1. OXCARBAZEPINE [Suspect]
     Active Substance: OXCARBAZEPINE
     Indication: Epileptic encephalopathy
     Route: 065
  2. OXCARBAZEPINE [Suspect]
     Active Substance: OXCARBAZEPINE
     Indication: Epileptic encephalopathy
     Route: 065

REACTIONS (3)
  - Tonic convulsion [Recovering/Resolving]
  - Drug withdrawal convulsions [Recovering/Resolving]
  - Petit mal epilepsy [Recovering/Resolving]
